FAERS Safety Report 9611887 (Version 1)
Quarter: 2013Q4

REPORT INFORMATION
  Report Type: Spontaneous
  Country: SA (occurrence: SA)
  Receive Date: 20131010
  Receipt Date: 20131010
  Transmission Date: 20140711
  Serious: Yes (Other)
  Sender: FDA-Public Use
  Company Number: SA-AMGEN-SAUSP2013070988

PATIENT
  Age: 55 Year
  Sex: Female

DRUGS (4)
  1. ETANERCEPT [Suspect]
     Indication: PRODUCT USED FOR UNKNOWN INDICATION
     Dosage: 50 MG, WEEKLY
     Route: 058
     Dates: start: 201207
  2. METHOTREXATE SODIUM [Suspect]
     Indication: ARTHRITIS
     Dosage: 12.5 MG, WEEKLY
     Route: 065
  3. FOLIC ACID [Concomitant]
     Indication: ARTHRITIS
     Dosage: 5 MG, WEEKLY
  4. PREDNISOLONE [Concomitant]
     Indication: ARTHRITIS
     Dosage: 10 MG, 1X/DAY

REACTIONS (2)
  - Polyarthritis [Recovering/Resolving]
  - Mycobacterium abscessus infection [Recovered/Resolved]
